FAERS Safety Report 24733410 (Version 1)
Quarter: 2024Q4

REPORT INFORMATION
  Report Type: Report from Study
  Country: CA (occurrence: CA)
  Receive Date: 20241213
  Receipt Date: 20241213
  Transmission Date: 20250115
  Serious: Yes (Hospitalization)
  Sender: ABBVIE
  Company Number: CA-ABBVIE-5956586

PATIENT
  Sex: Female

DRUGS (1)
  1. SKYRIZI [Suspect]
     Active Substance: RISANKIZUMAB-RZAA
     Indication: Crohn^s disease
     Route: 058
     Dates: start: 20230613

REACTIONS (9)
  - Rectal haemorrhage [Not Recovered/Not Resolved]
  - Crohn^s disease [Not Recovered/Not Resolved]
  - Haemoglobin abnormal [Unknown]
  - Dizziness [Unknown]
  - Proctalgia [Not Recovered/Not Resolved]
  - Pain [Unknown]
  - Blood iron decreased [Unknown]
  - Full blood count decreased [Unknown]
  - Fatigue [Unknown]
